FAERS Safety Report 10979432 (Version 1)
Quarter: 2015Q2

REPORT INFORMATION
  Report Type: Spontaneous
  Country: IT (occurrence: IT)
  Receive Date: 20150402
  Receipt Date: 20150402
  Transmission Date: 20150821
  Serious: Yes (Hospitalization)
  Sender: FDA-Public Use
  Company Number: IT-PFIZER INC-2015115468

PATIENT
  Age: 77 Year
  Sex: Male

DRUGS (2)
  1. PREVEX [Concomitant]
     Active Substance: FELODIPINE
     Dosage: 5 MG
     Route: 065
  2. ATENOLOL. [Suspect]
     Active Substance: ATENOLOL
     Indication: HYPERTENSION
     Dosage: 50 MG, 1X/DAY
     Route: 048
     Dates: start: 20100101, end: 20150310

REACTIONS (3)
  - Asthenia [Recovering/Resolving]
  - Nodal arrhythmia [Recovering/Resolving]
  - Dizziness [Recovering/Resolving]

NARRATIVE: CASE EVENT DATE: 20150310
